FAERS Safety Report 9277779 (Version 2)
Quarter: 2013Q2

REPORT INFORMATION
  Report Type: Report from Study
  Country: CA (occurrence: CA)
  Receive Date: 20130508
  Receipt Date: 20130603
  Transmission Date: 20140414
  Serious: Yes (Hospitalization, Other)
  Sender: FDA-Public Use
  Company Number: CA-JNJFOC-20130500353

PATIENT
  Age: 10 Year
  Sex: Male
  Weight: 50 kg

DRUGS (8)
  1. REMICADE [Suspect]
     Indication: CROHN^S DISEASE
     Dosage: AT WEEKS 0-2-6 AND ONCE EVERY 8 WEEKS
     Route: 042
     Dates: start: 20130430
  2. REMICADE [Suspect]
     Indication: CROHN^S DISEASE
     Route: 042
     Dates: start: 20120831
  3. REMICADE [Suspect]
     Indication: CROHN^S DISEASE
     Dosage: 10 MG/KG
     Route: 042
     Dates: start: 201211, end: 201302
  4. CORTISONE [Suspect]
     Indication: PRODUCT USED FOR UNKNOWN INDICATION
     Route: 048
     Dates: end: 20121210
  5. CORTISONE [Suspect]
     Indication: PRODUCT USED FOR UNKNOWN INDICATION
     Route: 048
     Dates: start: 2013
  6. SOLU MEDROL [Concomitant]
     Route: 042
  7. VANCOMYCIN [Concomitant]
     Dosage: FOR 2 WEEKS
     Route: 048
     Dates: start: 20130525
  8. IMURAN [Concomitant]
     Route: 065

REACTIONS (7)
  - Drug ineffective [Not Recovered/Not Resolved]
  - Crohn^s disease [Not Recovered/Not Resolved]
  - Arthritis [Not Recovered/Not Resolved]
  - Weight increased [Unknown]
  - Clostridium test positive [Not Recovered/Not Resolved]
  - Malaise [Unknown]
  - Headache [Unknown]
